FAERS Safety Report 14699864 (Version 2)
Quarter: 2018Q2

REPORT INFORMATION
  Report Type: Spontaneous
  Country: FR (occurrence: FR)
  Receive Date: 20180330
  Receipt Date: 20180409
  Transmission Date: 20180711
  Serious: Yes (Death)
  Sender: FDA-Public Use
  Company Number: FR-SA-2018SA089595

PATIENT
  Age: 63 Year
  Sex: Female
  Weight: 61 kg

DRUGS (6)
  1. ASPEGIC [Suspect]
     Active Substance: ASPIRIN DL-LYSINE
     Route: 042
     Dates: start: 20180301, end: 20180302
  2. LOVENOX [Suspect]
     Active Substance: ENOXAPARIN SODIUM
     Route: 058
     Dates: start: 20180226, end: 20180301
  3. AMOXICILLIN/CLAVULANIC ACID [Suspect]
     Active Substance: AMOXICILLIN\CLAVULANIC ACID
     Indication: PNEUMONIA
     Route: 048
     Dates: start: 20180227, end: 20180228
  4. AMIKACINE MYLAN [Suspect]
     Active Substance: AMIKACIN
     Indication: PNEUMONIA
     Route: 042
     Dates: start: 20180228, end: 20180301
  5. TAZOBACTAM/PIPERACILLIN [Suspect]
     Active Substance: PIPERACILLIN SODIUM\TAZOBACTAM SODIUM
     Indication: PNEUMONIA
     Route: 042
     Dates: start: 20180228, end: 20180307
  6. TAMIFLU [Suspect]
     Active Substance: OSELTAMIVIR PHOSPHATE
     Indication: INFLUENZA
     Route: 048
     Dates: start: 20180228, end: 20180305

REACTIONS (3)
  - Rhabdomyolysis [Fatal]
  - Acute kidney injury [Fatal]
  - Hepatitis fulminant [Fatal]

NARRATIVE: CASE EVENT DATE: 20180302
